FAERS Safety Report 4767107-0 (Version None)
Quarter: 2005Q3

REPORT INFORMATION
  Report Type: 
  Country: None (occurrence: None)
  Receive Date: 20050906
  Receipt Date: 20050708
  Transmission Date: 20060218
  Serious: No
  Sender: FDA-Public Use
  Company Number: 2005-BP-11557BP

PATIENT
  Age: 67 Year
  Sex: Male

DRUGS (9)
  1. SPIRIVA [Suspect]
     Indication: CHRONIC OBSTRUCTIVE PULMONARY DISEASE
     Dosage: 18 MCG (18 MCG, QD), IH
     Route: 055
     Dates: start: 20040701
  2. CARTIA XT [Concomitant]
  3. SINGULAIR [Concomitant]
  4. THEO-24 (THEOPHYLLINE) [Concomitant]
  5. PREDNISONE [Concomitant]
  6. ALBUTEROL [Concomitant]
  7. ADVAIR DISKUS 100/50 [Concomitant]
  8. FLOMAX [Concomitant]
  9. CYMBALTA (ARICLAIM) [Concomitant]

REACTIONS (1)
  - VISION BLURRED [None]
